FAERS Safety Report 5514940-3 (Version None)
Quarter: 2007Q4

REPORT INFORMATION
  Report Type: 
  Country: None (occurrence: None)
  Receive Date: 20071113
  Receipt Date: 20061013
  Transmission Date: 20080405
  Serious: No
  Sender: FDA-Public Use
  Company Number: A0623590A

PATIENT
  Sex: Male

DRUGS (1)
  1. COREG [Suspect]
     Indication: ATRIAL FIBRILLATION
     Dosage: 25MG TWICE PER DAY
     Route: 048

REACTIONS (1)
  - HEART RATE INCREASED [None]
